FAERS Safety Report 7435826-3 (Version None)
Quarter: 2011Q2

REPORT INFORMATION
  Report Type: 
  Country: None (occurrence: None)
  Receive Date: 20110425
  Receipt Date: 20110414
  Transmission Date: 20111010
  Serious: Yes (Other)
  Sender: FDA-Public Use
  Company Number: US-ELI_LILLY_AND_COMPANY-US201104004264

PATIENT
  Age: 33 Year
  Sex: Male

DRUGS (5)
  1. MORPHINE [Concomitant]
  2. CODEINE [Concomitant]
  3. FLUOXETINE HYDROCHLORIDE [Suspect]
  4. VALIUM [Concomitant]
  5. HEROIN [Concomitant]

REACTIONS (5)
  - ROAD TRAFFIC ACCIDENT [None]
  - PSYCHOMOTOR SKILLS IMPAIRED [None]
  - SOMNOLENCE [None]
  - DRUG INTERACTION [None]
  - HOMICIDE [None]
